FAERS Safety Report 13290871 (Version 1)
Quarter: 2017Q1

REPORT INFORMATION
  Report Type: Spontaneous
  Country: IT (occurrence: IT)
  Receive Date: 20170302
  Receipt Date: 20170302
  Transmission Date: 20170428
  Serious: Yes (Death, Hospitalization, Other)
  Sender: FDA-Public Use
  Company Number: IT-ELI_LILLY_AND_COMPANY-IT201612009698

PATIENT
  Age: 87 Year
  Sex: Male
  Weight: 75 kg

DRUGS (3)
  1. QUETIAPINE. [Suspect]
     Active Substance: QUETIAPINE
     Indication: PRODUCT USED FOR UNKNOWN INDICATION
     Dosage: UNK, UNKNOWN
     Route: 048
  2. ZYPREXA [Suspect]
     Active Substance: OLANZAPINE
     Indication: AGITATION
     Dosage: 10 MG, QD
     Route: 048
     Dates: start: 20161001, end: 20161219
  3. TRITTICO [Suspect]
     Active Substance: TRAZODONE HYDROCHLORIDE
     Indication: PRODUCT USED FOR UNKNOWN INDICATION
     Dosage: UNK, UNKNOWN
     Route: 048

REACTIONS (12)
  - Vascular dementia [Unknown]
  - Cardiac failure [Fatal]
  - Pneumonia aspiration [Recovering/Resolving]
  - Parkinsonism [Recovering/Resolving]
  - Sopor [Recovering/Resolving]
  - Ischaemic cardiomyopathy [Fatal]
  - Atrial fibrillation [Unknown]
  - Hypertension [Unknown]
  - Overdose [Unknown]
  - Left ventricular dysfunction [Fatal]
  - Arteriosclerosis [Unknown]
  - Type 2 diabetes mellitus [Unknown]

NARRATIVE: CASE EVENT DATE: 20161208
